FAERS Safety Report 9224346 (Version 1)
Quarter: 2013Q2

REPORT INFORMATION
  Report Type: Spontaneous
  Country: US (occurrence: None)
  Receive Date: 20130409
  Receipt Date: 20130409
  Transmission Date: 20140414
  Serious: No
  Sender: FDA-Public Use
  Company Number: None

PATIENT
  Age: 46 Year
  Sex: Female

DRUGS (1)
  1. MORPHINE SULFATE EXTENDED RELEASE [Suspect]
     Indication: PAIN
     Route: 048
     Dates: start: 20130114, end: 20130208

REACTIONS (1)
  - Nausea [None]
